FAERS Safety Report 20361049 (Version 3)
Quarter: 2022Q1

REPORT INFORMATION
  Report Type: Report from Study
  Country: FR (occurrence: FR)
  Receive Date: 20220121
  Receipt Date: 20220331
  Transmission Date: 20220423
  Serious: Yes (Other)
  Sender: FDA-Public Use
  Company Number: FR-ABBVIE-22K-056-4242854-00

PATIENT
  Age: 63 Year
  Sex: Male

DRUGS (3)
  1. CARBIDOPA\LEVODOPA [Suspect]
     Active Substance: CARBIDOPA\LEVODOPA
     Indication: Parkinson^s disease
     Route: 050
     Dates: start: 201411
  2. CARBIDOPA\LEVODOPA [Suspect]
     Active Substance: CARBIDOPA\LEVODOPA
     Route: 050
  3. APOMORPHINE [Concomitant]
     Active Substance: APOMORPHINE
     Indication: Parkinson^s disease
     Dosage: FLOW RATE OF 3 MG/H FROM 7 AM TO 7 PM
     Dates: start: 202202

REACTIONS (8)
  - Balance disorder [Unknown]
  - General physical health deterioration [Unknown]
  - Cognitive disorder [Unknown]
  - Fall [Unknown]
  - Dysphagia [Unknown]
  - Parkinson^s disease [Unknown]
  - Feeding disorder [Unknown]
  - Device defective [Unknown]

NARRATIVE: CASE EVENT DATE: 20220224
